FAERS Safety Report 16895895 (Version 2)
Quarter: 2019Q4

REPORT INFORMATION
  Report Type: Spontaneous
  Country: US (occurrence: US)
  Receive Date: 20191008
  Receipt Date: 20191231
  Transmission Date: 20200122
  Serious: Yes (Other)
  Sender: FDA-Public Use
  Company Number: US-BAUSCH-BL-2019-026509

PATIENT
  Sex: Female
  Weight: 49.03 kg

DRUGS (4)
  1. DILTIAZEM HCL TABLETS [Suspect]
     Active Substance: DILTIAZEM HYDROCHLORIDE
     Indication: HEART RATE INCREASED
     Dosage: FOR 7 YEARS FROM DATE OF INITIAL REPORT
     Route: 048
     Dates: start: 2012
  2. L-THYROXINE [Concomitant]
     Active Substance: LEVOTHYROXINE
     Dosage: LOWERED DOSE
  3. DILTIAZEM HCL TABLETS [Suspect]
     Active Substance: DILTIAZEM HYDROCHLORIDE
     Indication: PRODUCT USE IN UNAPPROVED INDICATION
     Dosage: NEW PRESCRIPTION (NEW BOTTLE) STARTED IN JUN OR JUL 2019
     Route: 048
     Dates: start: 2019
  4. L-THYROXINE [Concomitant]
     Active Substance: LEVOTHYROXINE
     Indication: PRODUCT USED FOR UNKNOWN INDICATION
     Dosage: STARTED ABOUT A LONG TIME AGO

REACTIONS (3)
  - Cataract [Unknown]
  - Heart rate increased [Not Recovered/Not Resolved]
  - Product use in unapproved indication [Unknown]

NARRATIVE: CASE EVENT DATE: 2012
